FAERS Safety Report 12078511 (Version 4)
Quarter: 2016Q2

REPORT INFORMATION
  Report Type: Report from Study
  Country: US (occurrence: US)
  Receive Date: 20160216
  Receipt Date: 20160608
  Transmission Date: 20160815
  Serious: No
  Sender: FDA-Public Use
  Company Number: PHEH2016US003714

PATIENT
  Age: 26 Year
  Sex: Female
  Weight: 68 kg

DRUGS (1)
  1. GILENYA [Suspect]
     Active Substance: FINGOLIMOD HYDROCHLORIDE
     Indication: MULTIPLE SCLEROSIS
     Dosage: 0.5 MG, QD
     Route: 048
     Dates: start: 20160211

REACTIONS (6)
  - Anxiety [Recovered/Resolved]
  - Chest pain [Unknown]
  - Breast discomfort [Not Recovered/Not Resolved]
  - Heart rate decreased [Recovered/Resolved]
  - Breast pain [Not Recovered/Not Resolved]
  - Paranoia [Not Recovered/Not Resolved]

NARRATIVE: CASE EVENT DATE: 20160211
